FAERS Safety Report 6062002-1 (Version None)
Quarter: 2009Q1

REPORT INFORMATION
  Report Type: 
  Country: None (occurrence: None)
  Receive Date: 20090202
  Receipt Date: 20090128
  Transmission Date: 20090719
  Serious: Yes (Death)
  Sender: FDA-Public Use
  Company Number: GB-B.I. PHARMACEUTICALS,INC./RIDGEFIELD-2008-UK-01679UK

PATIENT
  Sex: Male

DRUGS (7)
  1. SPIRIVA [Suspect]
     Indication: RESPIRATORY FAILURE
     Dosage: 18MCG
     Route: 055
     Dates: start: 20021101, end: 20030301
  2. SPIRIVA [Suspect]
     Indication: CHRONIC OBSTRUCTIVE PULMONARY DISEASE
  3. THEOPHYLLINE [Concomitant]
     Indication: RESPIRATORY FAILURE
  4. FLUOXETRE [Concomitant]
     Indication: RESPIRATORY FAILURE
  5. COMBIVENT [Concomitant]
     Indication: RESPIRATORY FAILURE
     Dosage: NEBULISER
  6. SALBUTAMOL [Concomitant]
     Indication: RESPIRATORY FAILURE
     Dosage: INHALER
  7. BECLAMETHASONE [Concomitant]
     Indication: RESPIRATORY FAILURE
     Dosage: 250 INHALER

REACTIONS (1)
  - RESPIRATORY FAILURE [None]
